FAERS Safety Report 23141066 (Version 1)
Quarter: 2023Q4

REPORT INFORMATION
  Report Type: Spontaneous
  Country: BR (occurrence: BR)
  Receive Date: 20231103
  Receipt Date: 20231103
  Transmission Date: 20240109
  Serious: Yes (Other)
  Sender: FDA-Public Use
  Company Number: BR-TAKEDA-2023TUS105403

PATIENT
  Age: 43 Year
  Sex: Female
  Weight: 88 kg

DRUGS (6)
  1. LISDEXAMFETAMINE DIMESYLATE [Suspect]
     Active Substance: LISDEXAMFETAMINE DIMESYLATE
     Indication: Eating disorder
     Dosage: 1 DOSAGE FORM, QD
     Route: 065
     Dates: start: 20231019
  2. METOPROLOL [Concomitant]
     Active Substance: METOPROLOL
     Indication: Arrhythmia
     Dosage: 75 MILLIGRAM
     Route: 065
  3. ESCITALOPRAM [Concomitant]
     Active Substance: ESCITALOPRAM OXALATE
     Indication: Anxiety
  4. ESCITALOPRAM [Concomitant]
     Active Substance: ESCITALOPRAM OXALATE
     Indication: Cough
  5. Trezor [Concomitant]
  6. Flux [Concomitant]

REACTIONS (10)
  - Arrhythmia [Unknown]
  - Eating disorder [Unknown]
  - Blood cholesterol increased [Unknown]
  - Blood triglycerides increased [Unknown]
  - Hepatic steatosis [Unknown]
  - Weight decreased [Unknown]
  - Anxiety [Unknown]
  - Dry mouth [Unknown]
  - Tachycardia [Unknown]
  - Wrong technique in product usage process [Unknown]

NARRATIVE: CASE EVENT DATE: 20231019
